FAERS Safety Report 4729951-5 (Version None)
Quarter: 2005Q3

REPORT INFORMATION
  Report Type: 
  Country: None (occurrence: None)
  Receive Date: 20050728
  Receipt Date: 20050719
  Transmission Date: 20060218
  Serious: Yes (Other)
  Sender: FDA-Public Use
  Company Number: 2005-07-1230

PATIENT
  Age: 27 Year
  Sex: Female
  Weight: 59 kg

DRUGS (3)
  1. AERIUS (DESLORATADINE) TABLETS [Suspect]
     Indication: DERMATITIS ALLERGIC
     Dosage: 5 MG QD ORAL
     Route: 048
     Dates: start: 20050620, end: 20050621
  2. RANITIDINE [Concomitant]
  3. BELARA (CHLORMADINONE ACETATE/ETHINYL ESTRADIOL) TABLETS [Concomitant]

REACTIONS (2)
  - INITIAL INSOMNIA [None]
  - PERSECUTORY DELUSION [None]
